FAERS Safety Report 8536526-9 (Version None)
Quarter: 2012Q3

REPORT INFORMATION
  Report Type: 
  Country: None (occurrence: None)
  Receive Date: 20120725
  Receipt Date: 20120724
  Transmission Date: 20120928
  Serious: Yes (Hospitalization)
  Sender: FDA-Public Use
  Company Number: CN-ROCHE-1048821

PATIENT
  Sex: Male
  Weight: 75 kg

DRUGS (2)
  1. COPEGUS [Suspect]
     Indication: HEPATITIS C
     Route: 048
     Dates: start: 20100118, end: 20110530
  2. PEGASYS [Suspect]
     Indication: HEPATITIS C
     Dates: start: 20100118, end: 20110530

REACTIONS (1)
  - TUBERCULOUS PLEURISY [None]
